FAERS Safety Report 9401091 (Version 2)
Quarter: 2013Q3

REPORT INFORMATION
  Report Type: Spontaneous
  Country: NL (occurrence: NL)
  Receive Date: 20130715
  Receipt Date: 20130717
  Transmission Date: 20140515
  Serious: Yes (Hospitalization)
  Sender: FDA-Public Use
  Company Number: NL-TEVA-416876ISR

PATIENT
  Age: 72 Year
  Sex: Female
  Weight: 62 kg

DRUGS (7)
  1. EPIRUBICINE INFUSIEPOEDER 10MG [Suspect]
     Indication: GASTRIC CANCER
     Dosage: ACCORDING TO PROTOCOL FOR WEIGHT AND LENGTH
     Route: 042
     Dates: start: 20130613, end: 20130628
  2. CISPLATINE PDR V INFVLST 10MG [Suspect]
     Indication: GASTRIC CANCER
     Dosage: ACCORDING TO PROTOCOL WEIGHT AND LENGTH
     Route: 042
     Dates: start: 20130613, end: 20130628
  3. CAPECITABINE I.V. [Suspect]
     Indication: GASTRIC CANCER
     Dosage: ACCORDING TO PROTOCOL WEIGHT AND LENGTH
     Route: 042
     Dates: start: 20130613, end: 20130628
  4. ESOMEPRAZOL CAPSULE MSR 40MG [Concomitant]
     Dosage: 80 MILLIGRAM DAILY; 2 DD 1 START DATE UNKNOWN
     Route: 048
  5. LOPERAMIDE DRANK 0,2MG/ML [Concomitant]
     Dosage: 6 DOSAGE FORMS DAILY; 6 DD , START DATE UNKNOWN
     Route: 048
  6. METOCLOPRAMIDE TABLET 10MG [Concomitant]
     Dosage: AS NEEDED, START DATE UNKNOWN
     Route: 048
  7. PARACETAMOL TABLET  500MG [Concomitant]
     Dosage: 4000 MILLIGRAM DAILY; 4 DD 2, STRAT DATE UNKNOWN
     Route: 048

REACTIONS (1)
  - Pneumatosis intestinalis [Recovering/Resolving]
